FAERS Safety Report 7406001-3 (Version None)
Quarter: 2011Q2

REPORT INFORMATION
  Report Type: 
  Country: None (occurrence: None)
  Receive Date: 20110411
  Receipt Date: 20101007
  Transmission Date: 20111010
  Serious: Yes (Hospitalization)
  Sender: FDA-Public Use
  Company Number: A0886366A

PATIENT
  Sex: Male

DRUGS (10)
  1. AVANDIA [Suspect]
     Dosage: 8MG PER DAY
     Route: 048
     Dates: start: 20000101, end: 20071201
  2. ATENOLOL [Concomitant]
  3. PROGRAF [Concomitant]
  4. GLIPIZIDE [Concomitant]
  5. PREDNISONE [Concomitant]
  6. COZAAR [Concomitant]
  7. INSULIN [Concomitant]
  8. ZOCOR [Concomitant]
  9. PEPCID [Concomitant]
  10. CELLCEPT [Concomitant]

REACTIONS (3)
  - CEREBROVASCULAR ACCIDENT [None]
  - TRANSIENT ISCHAEMIC ATTACK [None]
  - CARDIAC FAILURE CONGESTIVE [None]
